FAERS Safety Report 23450381 (Version 1)
Quarter: 2024Q1

REPORT INFORMATION
  Report Type: Other
  Country: ZA (occurrence: None)
  Receive Date: 20240129
  Receipt Date: 20240129
  Transmission Date: 20240410
  Serious: Yes (Other)
  Sender: FDA-Public Use
  Company Number: ZA-ROCHE-3417619

PATIENT
  Sex: Female

DRUGS (1)
  1. OCREVUS [Suspect]
     Active Substance: OCRELIZUMAB
     Indication: Multiple sclerosis
     Dosage: 300 MG, EVERY 15 DAYS THERAFTER 600MG EVERY 6 MONTHS
     Route: 041
     Dates: start: 20230307

REACTIONS (3)
  - Magnetic resonance imaging head abnormal [Unknown]
  - Multiple sclerosis [Unknown]
  - Demyelination [Unknown]
